FAERS Safety Report 6727670-7 (Version None)
Quarter: 2010Q2

REPORT INFORMATION
  Report Type: 
  Country: None (occurrence: None)
  Receive Date: 20100512
  Receipt Date: 20100210
  Transmission Date: 20101027
  Serious: No
  Sender: FDA-Public Use
  Company Number: 1000011760

PATIENT
  Age: 62 Year
  Sex: Female

DRUGS (5)
  1. SAVELLA [Suspect]
     Indication: BACK PAIN
     Dosage: 12.5 MG (12.5 MG, 1 IN 1 D), ORAL ; 25 MG (12.5 MG, 2 IN 1 D), ORAL ; 50 MG (25 MG, 2 IN 1 D), ORAL
     Route: 048
     Dates: start: 20100205, end: 20100205
  2. SAVELLA [Suspect]
     Indication: BACK PAIN
     Dosage: 12.5 MG (12.5 MG, 1 IN 1 D), ORAL ; 25 MG (12.5 MG, 2 IN 1 D), ORAL ; 50 MG (25 MG, 2 IN 1 D), ORAL
     Route: 048
     Dates: start: 20100206, end: 20100207
  3. SAVELLA [Suspect]
     Indication: BACK PAIN
     Dosage: 12.5 MG (12.5 MG, 1 IN 1 D), ORAL ; 25 MG (12.5 MG, 2 IN 1 D), ORAL ; 50 MG (25 MG, 2 IN 1 D), ORAL
     Route: 048
     Dates: start: 20100208
  4. PLAQUENIL [Concomitant]
  5. AMBIEN CR [Concomitant]

REACTIONS (1)
  - HEADACHE [None]
